FAERS Safety Report 12298632 (Version 2)
Quarter: 2016Q2

REPORT INFORMATION
  Report Type: Spontaneous
  Country: US (occurrence: US)
  Receive Date: 20160425
  Receipt Date: 20160505
  Transmission Date: 20160815
  Serious: Yes (Other)
  Sender: FDA-Public Use
  Company Number: US-AMGEN-USASP2016050738

PATIENT
  Age: 71 Year
  Sex: Female
  Weight: 72.11 kg

DRUGS (1)
  1. PROLIA [Suspect]
     Active Substance: DENOSUMAB
     Indication: OSTEOPENIA
     Dosage: 60 MG/ML, UNK
     Route: 058
     Dates: start: 20151022, end: 20160418

REACTIONS (4)
  - Gingival bleeding [Recovered/Resolved]
  - Procedural haemorrhage [Unknown]
  - Off label use [Unknown]
  - Constipation [Recovering/Resolving]

NARRATIVE: CASE EVENT DATE: 20160418
